FAERS Safety Report 5520402-X (Version None)
Quarter: 2007Q4

REPORT INFORMATION
  Report Type: 
  Country: None (occurrence: None)
  Receive Date: 20071119
  Receipt Date: 20071109
  Transmission Date: 20080405
  Serious: Yes (Other)
  Sender: FDA-Public Use
  Company Number: US-PFIZER INC-2007094879

PATIENT
  Sex: Male
  Weight: 68 kg

DRUGS (3)
  1. VIAGRA [Suspect]
     Indication: ERECTILE DYSFUNCTION
  2. COUMADIN [Concomitant]
  3. SYNTHROID [Concomitant]

REACTIONS (2)
  - DRUG LEVEL DECREASED [None]
  - TESTICULAR SWELLING [None]
